FAERS Safety Report 18617363 (Version 1)
Quarter: 2020Q4

REPORT INFORMATION
  Report Type: Spontaneous
  Country: US (occurrence: US)
  Receive Date: 20201215
  Receipt Date: 20201215
  Transmission Date: 20210114
  Serious: No
  Sender: FDA-Public Use
  Company Number: US-CELLTRION INC.-2020US032039

PATIENT

DRUGS (3)
  1. TRUXIMA [Suspect]
     Active Substance: RITUXIMAB-ABBS
     Dosage: 600 MILLIGRAM ONCE A WEEK
     Dates: start: 20201106
  2. TRUXIMA [Suspect]
     Active Substance: RITUXIMAB-ABBS
     Dosage: 600 MILLIGRAM ONCE A WEEK
     Dates: start: 20201113
  3. TRUXIMA [Suspect]
     Active Substance: RITUXIMAB-ABBS
     Indication: AUTOIMMUNE HAEMOLYTIC ANAEMIA
     Dosage: 600 MILLIGRAM ONCE A WEEK
     Dates: start: 20201031

REACTIONS (1)
  - Off label use [Unknown]

NARRATIVE: CASE EVENT DATE: 20201031
